FAERS Safety Report 5166991-9 (Version None)
Quarter: 2006Q4

REPORT INFORMATION
  Report Type: 
  Country: None (occurrence: None)
  Receive Date: 20061201
  Receipt Date: 20061201
  Transmission Date: 20070319
  Serious: Yes (Other)
  Sender: FDA-Public Use
  Company Number: None

PATIENT
  Age: 18 Year
  Sex: Female
  Weight: 81.6475 kg

DRUGS (4)
  1. AVELOX [Suspect]
     Indication: BRONCHITIS
     Dosage: TABLET 1 PER DAY PO
     Route: 048
     Dates: start: 20061113, end: 20061126
  2. PROZAC [Concomitant]
  3. NAPROXIN [Concomitant]
  4. TYLENOL [Concomitant]

REACTIONS (7)
  - CHEST PAIN [None]
  - DRY MOUTH [None]
  - DYSPNOEA [None]
  - HEADACHE [None]
  - MYALGIA [None]
  - PYREXIA [None]
  - TENDONITIS [None]
